FAERS Safety Report 5104174-9 (Version None)
Quarter: 2006Q3

REPORT INFORMATION
  Report Type: 
  Country: None (occurrence: None)
  Receive Date: 20060911
  Receipt Date: 20060829
  Transmission Date: 20061208
  Serious: Yes (Hospitalization)
  Sender: FDA-Public Use
  Company Number: 2006_000025

PATIENT
  Age: 64 Year
  Sex: Male

DRUGS (4)
  1. DEPOCYT [Suspect]
     Indication: MANTLE CELL LYMPHOMA
     Dosage: 50 MG
  2. CYTARABINE [Concomitant]
  3. DEXAMETHASONE TAB [Concomitant]
  4. METHOTREXATE [Concomitant]

REACTIONS (4)
  - ASTHENIA [None]
  - CAUDA EQUINA SYNDROME [None]
  - ENCEPHALOMALACIA [None]
  - PAIN IN EXTREMITY [None]
